FAERS Safety Report 11804767 (Version 2)
Quarter: 2015Q4

REPORT INFORMATION
  Report Type: Report from Study
  Country: JP (occurrence: JP)
  Receive Date: 20151205
  Receipt Date: 20151229
  Transmission Date: 20160305
  Serious: Yes (Hospitalization)
  Sender: FDA-Public Use
  Company Number: JP-AMGEN-JPNCT2015129888

PATIENT
  Age: 86 Year
  Sex: Female
  Weight: 36 kg

DRUGS (18)
  1. AMLODIPINE                         /00972402/ [Concomitant]
     Active Substance: AMLODIPINE BESYLATE
     Indication: HYPERTENSION
     Dosage: 5 MG, QD
     Route: 048
  2. TAKEPRON [Concomitant]
     Active Substance: LANSOPRAZOLE
     Indication: GASTRIC ULCER
     Dosage: 15 MG, QD
     Route: 048
  3. DARBEPOETIN ALFA [Suspect]
     Active Substance: DARBEPOETIN ALFA
     Indication: CHRONIC KIDNEY DISEASE
     Dosage: 30 MUG, UNK
     Route: 065
     Dates: start: 20141205
  4. CALONAL [Concomitant]
     Active Substance: ACETAMINOPHEN
     Indication: BACK PAIN
     Dosage: 200 MG, UNK
     Route: 048
  5. TANATRIL [Concomitant]
     Active Substance: IMIDAPRIL
     Indication: HYPERTENSION
     Dosage: 5 MG, QD
     Route: 048
  6. GEBEN [Concomitant]
     Indication: SKIN ULCER
     Dosage: 100 G, AS NECESSARY
     Route: 061
  7. CEFCAPENE PIVOXIL HYDROCHLORIDE [Concomitant]
     Active Substance: CEFCAPENE PIVOXIL HYDROCHLORIDE
     Indication: SKIN ULCER
     Dosage: 100 MG, BID
     Route: 048
  8. LOXOPROFEN [Concomitant]
     Active Substance: LOXOPROFEN
     Indication: BACK PAIN
     Dosage: 60 MG, TID
     Route: 048
  9. LIMAPROST ALFADEX [Concomitant]
     Active Substance: LIMAPROST
     Indication: LUMBAR SPINAL STENOSIS
     Dosage: 5 MUG, TID
     Route: 048
  10. PANTETHINE [Concomitant]
     Active Substance: PANTETHINE
     Indication: HYPERLIPIDAEMIA
     Dosage: 100 MG, TID
     Route: 048
  11. MOHRUS [Concomitant]
     Active Substance: KETOPROFEN
     Indication: BACK PAIN
     Dosage: 20 MG, AS NECESSARY
     Route: 061
  12. MUCOSTA [Concomitant]
     Active Substance: REBAMIPIDE
     Indication: GASTRIC ULCER
     Dosage: 100 MG, TID
     Route: 048
  13. ACUATIM [Concomitant]
     Active Substance: NADIFLOXACIN
     Indication: SKIN ULCER
     Dosage: 10 MG, AS NECESSARY
     Route: 061
  14. ZETIA [Concomitant]
     Active Substance: EZETIMIBE
     Indication: HYPERURICAEMIA
     Dosage: 10 MG, QD
     Route: 048
  15. ACTONEL [Concomitant]
     Active Substance: RISEDRONATE SODIUM
     Indication: OSTEOPOROSIS
     Dosage: 17.5 MG, Q2WK
     Route: 048
  16. FERROUS CITRATE NA [Concomitant]
     Indication: NEPHROGENIC ANAEMIA
     Dosage: 50 MG, QD
     Route: 048
  17. NATRIX [Concomitant]
     Active Substance: INDAPAMIDE
     Indication: HYPERTENSION
     Dosage: 1 MG, QD
     Route: 048
  18. HIRUDOID                           /00723701/ [Concomitant]
     Active Substance: PENTOSAN POLYSULFATE SODIUM
     Indication: SKIN ULCER
     Dosage: 25 MG, AS NECESSARY
     Route: 061

REACTIONS (2)
  - Pyrexia [Recovering/Resolving]
  - C-reactive protein increased [Recovering/Resolving]

NARRATIVE: CASE EVENT DATE: 20151120
